FAERS Safety Report 14257511 (Version 1)
Quarter: 2017Q4

REPORT INFORMATION
  Report Type: Spontaneous
  Country: US (occurrence: US)
  Receive Date: 20171207
  Receipt Date: 20171207
  Transmission Date: 20180321
  Serious: No
  Sender: FDA-Public Use
  Company Number: US-ENDO PHARMACEUTICALS INC-2017-000834

PATIENT
  Age: 70 Year
  Sex: Female

DRUGS (1)
  1. PROPAFENONE HYDROCHLORIDE TABLETS 225MG [Suspect]
     Active Substance: PROPAFENONE HYDROCHLORIDE
     Indication: ATRIAL FIBRILLATION
     Dosage: 1 DF, BID
     Route: 065
     Dates: start: 20161022, end: 20161024

REACTIONS (2)
  - Skin exfoliation [Recovered/Resolved]
  - Rash generalised [Recovered/Resolved]

NARRATIVE: CASE EVENT DATE: 20161024
